FAERS Safety Report 7805204-3 (Version None)
Quarter: 2011Q4

REPORT INFORMATION
  Report Type: 
  Country: None (occurrence: None)
  Receive Date: 20111010
  Receipt Date: 20110928
  Transmission Date: 20120403
  Serious: Yes (Other)
  Sender: FDA-Public Use
  Company Number: US-ROCHE-791115

PATIENT
  Sex: Male
  Weight: 86.26 kg

DRUGS (1)
  1. ACCUTANE [Suspect]
     Indication: ACNE
     Route: 065
     Dates: start: 19840101, end: 19840601

REACTIONS (5)
  - COLITIS ULCERATIVE [None]
  - INTESTINAL OBSTRUCTION [None]
  - INFLAMMATORY BOWEL DISEASE [None]
  - LARGE INTESTINE PERFORATION [None]
  - MEGACOLON [None]
